FAERS Safety Report 6425801-X (Version None)
Quarter: 2009Q4

REPORT INFORMATION
  Report Type: 
  Country: None (occurrence: None)
  Receive Date: 20091103
  Receipt Date: 20090714
  Transmission Date: 20100525
  Serious: No
  Sender: FDA-Public Use
  Company Number: US-ABBOTT-09P-163-0585551-00

PATIENT

DRUGS (2)
  1. BIAXIN [Suspect]
     Indication: INFECTED BITES
     Dates: start: 20090605, end: 20090606
  2. BIAXIN [Suspect]
     Indication: ARTHROPOD BITE

REACTIONS (2)
  - DEAFNESS [None]
  - HYPOAESTHESIA [None]
